FAERS Safety Report 5020991-8 (Version None)
Quarter: 2006Q2

REPORT INFORMATION
  Report Type: 
  Country: None (occurrence: None)
  Receive Date: 20060606
  Receipt Date: 20060606
  Transmission Date: 20061013
  Serious: Yes (Hospitalization)
  Sender: FDA-Public Use
  Company Number: None

PATIENT
  Sex: Male
  Weight: 107.5025 kg

DRUGS (3)
  1. VELCADE [Suspect]
     Indication: NEOPLASM MALIGNANT
     Dosage: 1.69 MG   DAYS 1, 4, 8.11    IV
     Route: 042
     Dates: start: 20060411, end: 20060512
  2. CISPLATIN [Suspect]
     Indication: NEOPLASM MALIGNANT
     Dosage: 80MG   WEEKLY X  6    IV
     Route: 042
     Dates: start: 20060411, end: 20060516
  3. ROXICETT [Concomitant]

REACTIONS (2)
  - CHEST PAIN [None]
  - PLEURITIC PAIN [None]
